FAERS Safety Report 8033101-X (Version None)
Quarter: 2012Q1

REPORT INFORMATION
  Report Type: 
  Country: None (occurrence: None)
  Receive Date: 20120110
  Receipt Date: 20120110
  Transmission Date: 20120608
  Serious: No
  Sender: FDA-Public Use
  Company Number: None

PATIENT
  Sex: Female

DRUGS (1)
  1. REMICADE [Suspect]
     Indication: RHEUMATOID ARTHRITIS

REACTIONS (5)
  - UNEVALUABLE EVENT [None]
  - RESPIRATORY ARREST [None]
  - PRURITUS [None]
  - INFUSION RELATED REACTION [None]
  - DRUG HYPERSENSITIVITY [None]
